FAERS Safety Report 26196988 (Version 1)
Quarter: 2025Q4

REPORT INFORMATION
  Report Type: Spontaneous
  Country: EU (occurrence: EU)
  Receive Date: 20251224
  Receipt Date: 20251224
  Transmission Date: 20260118
  Serious: Yes (Other)
  Sender: B. BRAUN MEDICAL INC.
  Company Number: None

PATIENT
  Age: 81 Year
  Sex: Male
  Weight: 93 kg

DRUGS (5)
  1. AMIKACIN SULFATE [Interacting]
     Active Substance: AMIKACIN SULFATE
     Indication: Cholangitis acute
     Route: 042
     Dates: start: 20251029, end: 20251112
  2. METRONIDAZOLE [Interacting]
     Active Substance: METRONIDAZOLE
     Indication: Cholangitis acute
     Route: 048
     Dates: start: 20251029, end: 20251112
  3. MEROPENEM [Interacting]
     Active Substance: MEROPENEM
     Indication: Cholangitis acute
     Route: 042
     Dates: start: 20251029, end: 20251112
  4. PIPERACILLIN SODIUM\TAZOBACTAM SODIUM [Interacting]
     Active Substance: PIPERACILLIN SODIUM\TAZOBACTAM SODIUM
     Indication: Cholangitis acute
     Route: 042
     Dates: start: 20251029, end: 20251112
  5. OMEPRAZOL SODICO (2141SO) [Concomitant]
     Indication: Gastritis
     Route: 048
     Dates: start: 20251102

REACTIONS (2)
  - Pseudomembranous colitis [Recovered/Resolved]
  - Drug interaction [Unknown]

NARRATIVE: CASE EVENT DATE: 20251112
